FAERS Safety Report 24808697 (Version 1)
Quarter: 2025Q1

REPORT INFORMATION
  Report Type: Report from Study
  Country: US (occurrence: US)
  Receive Date: 20250106
  Receipt Date: 20250106
  Transmission Date: 20250409
  Serious: Yes (Other)
  Sender: ALEXION PHARMACEUTICALS
  Company Number: US-AstraZeneca-CH-00776160A

PATIENT

DRUGS (1)
  1. OSIMERTINIB [Suspect]
     Active Substance: OSIMERTINIB
     Indication: Lung neoplasm malignant
     Dosage: 80 MILLIGRAM, QD

REACTIONS (6)
  - Haematemesis [Unknown]
  - Multiple allergies [Unknown]
  - Cough [Unknown]
  - Alopecia [Unknown]
  - Illness [Unknown]
  - Skin lesion [Recovered/Resolved]
